FAERS Safety Report 8878234 (Version 1)
Quarter: 2012Q4

REPORT INFORMATION
  Report Type: 
  Country: US (occurrence: US)
  Receive Date: 20121025
  Receipt Date: 20121025
  Transmission Date: 20130627
  Serious: No
  Sender: FDA-Public Use
  Company Number: US-AMGEN-USASP2012022147

PATIENT
  Sex: Female
  Weight: 115.65 kg

DRUGS (11)
  1. ENBREL [Suspect]
     Indication: PRODUCT USED FOR UNKNOWN INDICATION
     Dosage: 50 mg, qwk
     Route: 058
     Dates: start: 201110
  2. NORVASC [Concomitant]
     Dosage: 5 mg, UNK
  3. MOEXIPRIL [Concomitant]
     Dosage: 15 mg, UNK
  4. OMEPRAZOLE [Concomitant]
     Dosage: 10 mg, UNK
  5. HYDROCHLOROTH [Concomitant]
     Dosage: 25 mg, UNK
  6. GLIPIZIDE [Concomitant]
     Dosage: 5 mg, UNK
  7. GABAPENTIN [Concomitant]
     Dosage: 100 mg, UNK
  8. VENTOLIN HFA [Concomitant]
  9. PROPANOLOL                         /00030001/ [Concomitant]
     Dosage: 80 mg, UNK
  10. AMITRIPTYLIN [Concomitant]
     Dosage: 75 mg, UNK
  11. ATORVASTATIN [Concomitant]
     Dosage: 10 mg, UNK

REACTIONS (2)
  - Infection [Recovered/Resolved]
  - Influenza [Recovered/Resolved]
